FAERS Safety Report 6840175-8 (Version None)
Quarter: 2010Q3

REPORT INFORMATION
  Report Type: 
  Country: None (occurrence: None)
  Receive Date: 20100713
  Receipt Date: 20100713
  Transmission Date: 20110219
  Serious: Yes (Hospitalization, Disabling)
  Sender: FDA-Public Use
  Company Number: None

PATIENT
  Age: 20 Year
  Sex: Female
  Weight: 117 kg

DRUGS (4)
  1. YASMIN [Suspect]
     Indication: MENSTRUAL CYCLE MANAGEMENT
     Dosage: 1 TABLET DAILY PO
     Route: 048
     Dates: start: 20060713, end: 20090101
  2. YASMIN [Suspect]
     Indication: OVARIAN CYST
     Dosage: 1 TABLET DAILY PO
     Route: 048
     Dates: start: 20060713, end: 20090101
  3. OCELLA 3MG DROSPIRENONE/0.03 BAYER HEALTHCARE PHARMACEUTICALS [Suspect]
     Indication: MENSTRUAL CYCLE MANAGEMENT
     Dosage: 1 TABLET DAILY PO
     Route: 048
     Dates: start: 20090101, end: 20100624
  4. OCELLA 3MG DROSPIRENONE/0.03 BAYER HEALTHCARE PHARMACEUTICALS [Suspect]
     Indication: OVARIAN CYST
     Dosage: 1 TABLET DAILY PO
     Route: 048
     Dates: start: 20090101, end: 20100624

REACTIONS (3)
  - ACTIVITIES OF DAILY LIVING IMPAIRED [None]
  - DEEP VEIN THROMBOSIS [None]
  - SCAR [None]
